FAERS Safety Report 6078574-7 (Version None)
Quarter: 2009Q1

REPORT INFORMATION
  Report Type: 
  Country: None (occurrence: None)
  Receive Date: 20090212
  Receipt Date: 20090130
  Transmission Date: 20090719
  Serious: Yes (Death)
  Sender: FDA-Public Use
  Company Number: US020956

PATIENT
  Age: 71 Year
  Sex: Male
  Weight: 57.1 kg

DRUGS (7)
  1. TRISENOX [Suspect]
     Indication: ACUTE PROMYELOCYTIC LEUKAEMIA
     Dosage: 0.15 MG/KG QD INTRAVENOUS DRIP
     Route: 041
     Dates: start: 20070618, end: 20070801
  2. POTASSIUM CHLORIDE [Concomitant]
  3. VALACYCLOVIR HCL [Concomitant]
  4. POLYMYXIN B SULFATE [Concomitant]
  5. ALLOPURINOL [Concomitant]
  6. ZOPICLONE [Concomitant]
  7. BENIDIPINE HYDROCHLORIDE [Concomitant]

REACTIONS (14)
  - ASTHMA [None]
  - BLOOD ALBUMIN DECREASED [None]
  - BLOOD PRESSURE DECREASED [None]
  - BLOOD SODIUM INCREASED [None]
  - CARDIAC FAILURE ACUTE [None]
  - CARDIO-RESPIRATORY ARREST [None]
  - DRUG EFFECT DECREASED [None]
  - ELECTROCARDIOGRAM QT PROLONGED [None]
  - EMPHYSEMA [None]
  - EXTRASYSTOLES [None]
  - HERPES ZOSTER [None]
  - PROTEIN TOTAL DECREASED [None]
  - STRIDOR [None]
  - VENTRICULAR EXTRASYSTOLES [None]
